FAERS Safety Report 13872743 (Version 2)
Quarter: 2017Q3

REPORT INFORMATION
  Report Type: Spontaneous
  Country: US (occurrence: US)
  Receive Date: 20170816
  Receipt Date: 20170825
  Transmission Date: 20171127
  Serious: Yes (Death, Other)
  Sender: FDA-Public Use
  Company Number: US-PFIZER INC-2017349303

PATIENT
  Age: 58 Year
  Sex: Female
  Weight: 95 kg

DRUGS (2)
  1. VANCOMYCIN HCL [Suspect]
     Active Substance: VANCOMYCIN HYDROCHLORIDE
     Indication: BACTERAEMIA
     Dosage: 1000 MG, SINGLE (ONETIME DOSE DURING HEMODIALYSIS)
     Route: 041
     Dates: start: 20170717
  2. ACETAMINOPHEN. [Concomitant]
     Active Substance: ACETAMINOPHEN
     Indication: BACTERAEMIA
     Dosage: UNK

REACTIONS (6)
  - Death [Fatal]
  - Pulse absent [Unknown]
  - Hyperventilation [Unknown]
  - Blood pressure decreased [Unknown]
  - Unresponsive to stimuli [Unknown]
  - Restlessness [Unknown]

NARRATIVE: CASE EVENT DATE: 20170717
